FAERS Safety Report 4471812-3 (Version None)
Quarter: 2004Q4

REPORT INFORMATION
  Report Type: 
  Country: None (occurrence: None)
  Receive Date: 20041006
  Receipt Date: 20040923
  Transmission Date: 20050328
  Serious: Yes (Other)
  Sender: FDA-Public Use
  Company Number: 2004061448

PATIENT
  Sex: Male

DRUGS (5)
  1. NEURONTIN [Suspect]
     Indication: ILL-DEFINED DISORDER
     Dosage: 600 MG (300 MG, 2 IN 1 D),
     Dates: start: 20031001
  2. PRAMIPEXOLE (PRAMIPEXOLE) [Concomitant]
  3. NORTRIPTYLINE HCL [Concomitant]
  4. FEXOFENADINE HYDROCHLORIDE [Concomitant]
  5. VICODIN [Concomitant]

REACTIONS (5)
  - BREAST CYST [None]
  - NEPHROLITHIASIS [None]
  - NEURALGIA [None]
  - RESTLESS LEGS SYNDROME [None]
  - SCROTAL MASS [None]
